FAERS Safety Report 8160400-3 (Version None)
Quarter: 2012Q1

REPORT INFORMATION
  Report Type: 
  Country: None (occurrence: None)
  Receive Date: 20120223
  Receipt Date: 20120218
  Transmission Date: 20120608
  Serious: Yes (Other)
  Sender: FDA-Public Use
  Company Number: US-PFIZER INC-2012045418

PATIENT
  Sex: Female

DRUGS (2)
  1. EFFEXOR XR [Suspect]
     Dosage: 37.5 MG, 2X/DAY
  2. EFFEXOR XR [Suspect]
     Dosage: 37.5 MG, 1X/DAY FOR A WEEK

REACTIONS (3)
  - BONE NEOPLASM [None]
  - LUNG DISORDER [None]
  - RENAL CANCER [None]
